FAERS Safety Report 18942420 (Version 2)
Quarter: 2022Q3

REPORT INFORMATION
  Report Type: Spontaneous
  Country: NO (occurrence: NO)
  Receive Date: 20210225
  Receipt Date: 20220816
  Transmission Date: 20221027
  Serious: Yes (Hospitalization)
  Sender: FDA-Public Use
  Company Number: None

PATIENT
  Sex: Male

DRUGS (3)
  1. VENLAFAXINE HYDROCHLORIDE [Suspect]
     Active Substance: VENLAFAXINE HYDROCHLORIDE
     Indication: Depression
     Dosage: 150 MG, 2X/DAY (EVERY 12 HOURS)
     Route: 064
     Dates: start: 2020, end: 20210203
  2. VENLAFAXINE HYDROCHLORIDE [Suspect]
     Active Substance: VENLAFAXINE HYDROCHLORIDE
     Indication: Anxiety
     Dosage: 150 MG, 2X/DAY (EVERY 12 HOURS)
     Route: 063
     Dates: start: 20210203
  3. STRATTERA [Suspect]
     Active Substance: ATOMOXETINE HYDROCHLORIDE
     Dosage: 125 MG, 1X/DAY (EVERY 24 HOURS)
     Route: 064
     Dates: start: 2020, end: 20210203

REACTIONS (4)
  - Maternal exposure during pregnancy [Recovering/Resolving]
  - Exposure via breast milk [Recovering/Resolving]
  - Muscle spasms [Recovering/Resolving]
  - Poor feeding infant [Recovering/Resolving]

NARRATIVE: CASE EVENT DATE: 20200101
